FAERS Safety Report 13789010 (Version 1)
Quarter: 2017Q3

REPORT INFORMATION
  Report Type: Spontaneous
  Country: JP (occurrence: JP)
  Receive Date: 20170725
  Receipt Date: 20170725
  Transmission Date: 20171127
  Serious: Yes (Hospitalization)
  Sender: FDA-Public Use
  Company Number: JP-PFIZER INC-2017313905

PATIENT
  Sex: Male
  Weight: 2.48 kg

DRUGS (1)
  1. CORTRIL [Suspect]
     Active Substance: HYDROCORTISONE
     Indication: HYPERADRENOCORTICISM
     Route: 064

REACTIONS (2)
  - Congenital infection [Unknown]
  - Maternal exposure during pregnancy [Unknown]
